FAERS Safety Report 13320831 (Version 2)
Quarter: 2017Q2

REPORT INFORMATION
  Report Type: Spontaneous
  Country: ES (occurrence: ES)
  Receive Date: 20170310
  Receipt Date: 20170425
  Transmission Date: 20170830
  Serious: Yes (Other)
  Sender: FDA-Public Use
  Company Number: ES-ALEXION-A201702381

PATIENT
  Age: 3 Month
  Sex: Male

DRUGS (3)
  1. KANUMA [Suspect]
     Active Substance: SEBELIPASE ALFA
     Indication: LYSOSOMAL ACID LIPASE DEFICIENCY
     Dosage: 1 MG/KG, UNK
     Route: 042
     Dates: start: 20170203
  2. KANUMA [Suspect]
     Active Substance: SEBELIPASE ALFA
     Dosage: 2 MG/KG, UNK
     Route: 042
     Dates: start: 20170217
  3. KANUMA [Suspect]
     Active Substance: SEBELIPASE ALFA
     Dosage: 3 MG/KG, QW
     Route: 042

REACTIONS (1)
  - Diarrhoea haemorrhagic [Recovered/Resolved]
